FAERS Safety Report 16663607 (Version 1)
Quarter: 2019Q3

REPORT INFORMATION
  Report Type: Spontaneous
  Country: AU (occurrence: AU)
  Receive Date: 20190802
  Receipt Date: 20190802
  Transmission Date: 20191004
  Serious: Yes (Hospitalization)
  Sender: FDA-Public Use
  Company Number: AU-BAXTER-2019BAX014726

PATIENT
  Age: 72 Year
  Sex: Female

DRUGS (2)
  1. BAXTER HEPARIN SODIUM 2000 IU 0.9 PERCENT SODIUM CHLORIDE INJECTION 10 [Suspect]
     Active Substance: HEPARIN SODIUM\SODIUM CHLORIDE
     Indication: HAEMODIALYSIS
     Dosage: AT THE BEGINNING OF HD
     Route: 040
     Dates: start: 20190723, end: 20190723
  2. BAXTER HEPARIN SODIUM 2000 IU 0.9 PERCENT SODIUM CHLORIDE INJECTION 10 [Suspect]
     Active Substance: HEPARIN SODIUM\SODIUM CHLORIDE
     Dosage: APPROXIMATELY A TOTAL OF 3500 U INCLUDING BOLUS DOS BY THE TIME OF THE EVENT
     Route: 042
     Dates: start: 20190723, end: 20190723

REACTIONS (4)
  - Loss of consciousness [Recovered/Resolved]
  - Device issue [Unknown]
  - Needle issue [Recovered/Resolved]
  - Haemorrhage [Recovered/Resolved]

NARRATIVE: CASE EVENT DATE: 20190723
